FAERS Safety Report 25277763 (Version 1)
Quarter: 2025Q2

REPORT INFORMATION
  Report Type: Spontaneous
  Country: NO (occurrence: NO)
  Receive Date: 20250507
  Receipt Date: 20250507
  Transmission Date: 20250716
  Serious: Yes (Disabling, Other)
  Sender: TEVA
  Company Number: None

PATIENT
  Age: 61 Year
  Sex: Female

DRUGS (1)
  1. AZILECT [Suspect]
     Active Substance: RASAGILINE MESYLATE
     Indication: Parkinson^s disease
     Dosage: DOSAGE TEXT: 1MG X 1
     Route: 065
     Dates: start: 20230720, end: 20230825

REACTIONS (4)
  - Hallucination, visual [Unknown]
  - Confusional state [Unknown]
  - General physical health deterioration [Unknown]
  - Anxiety [Unknown]

NARRATIVE: CASE EVENT DATE: 20230701
